FAERS Safety Report 5010378-6 (Version None)
Quarter: 2006Q2

REPORT INFORMATION
  Report Type: 
  Country: None (occurrence: None)
  Receive Date: 20060523
  Receipt Date: 20060508
  Transmission Date: 20061013
  Serious: Yes (Other)
  Sender: FDA-Public Use
  Company Number: 2006S1002996

PATIENT
  Age: 85 Year
  Sex: Female
  Weight: 90.7194 kg

DRUGS (16)
  1. FENTANYL TRANSDERMAL SYSTEM [Suspect]
     Indication: OSTEOARTHRITIS
     Dosage: 25 UG/HR;Q3D;TRANS
     Route: 062
     Dates: start: 20060228, end: 20060323
  2. FENTANYL TRANSDERMAL SYSTEM [Suspect]
     Indication: OSTEOARTHRITIS
     Dosage: 25 UG/HR;Q3D;TRANS
     Route: 062
     Dates: start: 20060405
  3. FENTANYL TRANSDERMAL SYSTEM [Suspect]
  4. FENTANYL TRANSDERMAL SYSTEM [Suspect]
     Indication: OSTEOARTHRITIS
     Dosage: 50 UG/HR;Q3D;TRANS
     Route: 062
     Dates: start: 20060324, end: 20060402
  5. TRIAMTERENE AND HYDROCHLOROTHIAZIDE [Concomitant]
  6. PARACETAMOL/HYDROCODONE [Concomitant]
  7. BITARTRATE [Concomitant]
  8. METAXALONE [Concomitant]
  9. IBUPROFEN [Concomitant]
  10. PARACETAMOL [Concomitant]
  11. METFORMIN [Concomitant]
  12. ATENOLOL [Concomitant]
  13. GLUCOSAMINE [Concomitant]
  14. VITAMINS NOS [Concomitant]
  15. ACETYLSALICYLIC ACID SRT [Concomitant]
  16. ASCORBIC ACID/PROGESTERONE/TOCOPHERYL ACETATE/ZINC OXIDE/CUPRIC OXIDE [Concomitant]

REACTIONS (9)
  - CHILLS [None]
  - DRUG INEFFECTIVE [None]
  - DRUG WITHDRAWAL SYNDROME [None]
  - FATIGUE [None]
  - FEELING ABNORMAL [None]
  - INADEQUATE ANALGESIA [None]
  - NAUSEA [None]
  - SOMNOLENCE [None]
  - YAWNING [None]
